FAERS Safety Report 22654404 (Version 1)
Quarter: 2023Q2

REPORT INFORMATION
  Report Type: Spontaneous
  Country: US (occurrence: None)
  Receive Date: 20230628
  Receipt Date: 20230628
  Transmission Date: 20230722
  Serious: No
  Sender: FDA-Public Use
  Company Number: None

PATIENT
  Age: 48 Year
  Sex: Female
  Weight: 72.9 kg

DRUGS (4)
  1. EMGALITY [Suspect]
     Active Substance: GALCANEZUMAB-GNLM
     Indication: Migraine
     Dosage: OTHER QUANTITY : 1 INJECTION(S);?OTHER FREQUENCY : EVERY 28 DAYS;?
     Route: 058
     Dates: start: 20230110, end: 20230608
  2. NURTEC ODT [Concomitant]
     Active Substance: RIMEGEPANT SULFATE
  3. MAGNESIUM [Concomitant]
     Active Substance: MAGNESIUM
  4. ASPIRIN [Concomitant]
     Active Substance: ASPIRIN

REACTIONS (19)
  - Migraine [None]
  - Dizziness [None]
  - Vestibular disorder [None]
  - Visual impairment [None]
  - Fatigue [None]
  - Gait disturbance [None]
  - Nystagmus [None]
  - Blindness [None]
  - Depressed mood [None]
  - Crying [None]
  - Paraesthesia [None]
  - Hypoaesthesia [None]
  - Arthralgia [None]
  - Injection site pain [None]
  - Weight increased [None]
  - Gastrointestinal disorder [None]
  - Ventricular extrasystoles [None]
  - Condition aggravated [None]
  - Product substitution issue [None]
